FAERS Safety Report 14109359 (Version 1)
Quarter: 2017Q4

REPORT INFORMATION
  Report Type: Report from Study
  Country: US (occurrence: US)
  Receive Date: 20171019
  Receipt Date: 20171019
  Transmission Date: 20180321
  Serious: Yes (Hospitalization)
  Sender: FDA-Public Use
  Company Number: US-EXELIXIS-CABO-17010885

PATIENT
  Age: 63 Year
  Sex: Male

DRUGS (1)
  1. CABOMETYX [Suspect]
     Active Substance: CABOZANTINIB S-MALATE
     Indication: RENAL CANCER
     Dosage: 60 MG, QD
     Route: 048
     Dates: start: 20170716

REACTIONS (5)
  - Hallucination [Unknown]
  - Urinary tract infection [Unknown]
  - Malignant neoplasm progression [Unknown]
  - Intervertebral disc disorder [Unknown]
  - Fall [Unknown]

NARRATIVE: CASE EVENT DATE: 20171004
